FAERS Safety Report 21707173 (Version 1)
Quarter: 2022Q4

REPORT INFORMATION
  Report Type: Report from Study
  Country: IN (occurrence: IN)
  Receive Date: 20221209
  Receipt Date: 20221209
  Transmission Date: 20230113
  Serious: Yes (Death)
  Sender: FDA-Public Use
  Company Number: IN-002147023-NVSC2022IN286204

PATIENT
  Age: 50 Year
  Sex: Female

DRUGS (2)
  1. TACROLIMUS [Suspect]
     Active Substance: TACROLIMUS
     Indication: Renal transplant
     Dosage: 1.5 MG
     Route: 065
     Dates: start: 2022, end: 20221020
  2. MYFORTIC [Suspect]
     Active Substance: MYCOPHENOLATE SODIUM
     Indication: Renal transplant
     Dosage: 360 MG
     Route: 065
     Dates: start: 2022, end: 20221020

REACTIONS (2)
  - Death [Fatal]
  - Incorrect dose administered [Unknown]

NARRATIVE: CASE EVENT DATE: 20220101
